FAERS Safety Report 4399034-5 (Version None)
Quarter: 2004Q3

REPORT INFORMATION
  Report Type: 
  Country: None (occurrence: None)
  Receive Date: 20040712
  Receipt Date: 20040622
  Transmission Date: 20050211
  Serious: Yes (Hospitalization)
  Sender: FDA-Public Use
  Company Number: US_031299560

PATIENT
  Age: 50 Year
  Sex: Male
  Weight: 86 kg

DRUGS (7)
  1. PEMETREXED [Suspect]
     Indication: MESOTHELIOMA
     Dosage: 1030 MG
     Dates: start: 20031209, end: 20040107
  2. CISPLATIN [Suspect]
     Indication: MESOTHELIOMA
     Dosage: 154 MG
     Dates: start: 20031209, end: 20040107
  3. VITAMIN B-12 [Concomitant]
  4. FOLIC ACID [Concomitant]
  5. DEXAMETHASONE [Concomitant]
  6. OXYCONTIN [Concomitant]
  7. KYTRIL [Concomitant]

REACTIONS (9)
  - ARTHRALGIA [None]
  - CHEST PAIN [None]
  - EAR PAIN [None]
  - HICCUPS [None]
  - NAUSEA [None]
  - NECK PAIN [None]
  - PERICARDITIS [None]
  - PLEURITIC PAIN [None]
  - VOMITING [None]
